FAERS Safety Report 20469259 (Version 1)
Quarter: 2022Q1

REPORT INFORMATION
  Report Type: Spontaneous
  Country: US (occurrence: None)
  Receive Date: 20220212
  Receipt Date: 20220212
  Transmission Date: 20220424
  Serious: Yes (Other)
  Sender: FDA-Public Use
  Company Number: None

PATIENT
  Age: 69 Year
  Sex: Female
  Weight: 77.4 kg

DRUGS (10)
  1. PROLIA [Suspect]
     Active Substance: DENOSUMAB
     Indication: Osteoporosis
     Route: 030
     Dates: start: 20210220, end: 20210817
  2. LYRICA [Concomitant]
     Active Substance: PREGABALIN
  3. TOPIRAMATE [Concomitant]
     Active Substance: TOPIRAMATE
  4. LISIININIPRO [Concomitant]
  5. OMEGA 3 [Concomitant]
     Active Substance: CAPSAICIN
  6. VITAMIN D3 [Concomitant]
     Active Substance: CHOLECALCIFEROL
  7. PROTANDIUM [Concomitant]
  8. MAGNESIUMR [Concomitant]
  9. MULTIVIT [Concomitant]
  10. CALCIUM [Concomitant]
     Active Substance: CALCIUM

REACTIONS (5)
  - Herpes zoster [None]
  - Trigeminal neuralgia [None]
  - Anaesthesia dolorosa [None]
  - Heart rate decreased [None]
  - Oral discomfort [None]

NARRATIVE: CASE EVENT DATE: 20210827
